FAERS Safety Report 7787236-7 (Version None)
Quarter: 2011Q3

REPORT INFORMATION
  Report Type: 
  Country: None (occurrence: None)
  Receive Date: 20110929
  Receipt Date: 20110920
  Transmission Date: 20111222
  Serious: Yes (Other)
  Sender: FDA-Public Use
  Company Number: FR-ACTELION-A-CH2011-50517

PATIENT
  Sex: Female

DRUGS (3)
  1. TRACLEER [Suspect]
     Indication: PULMONARY ARTERIAL HYPERTENSION
     Dosage: 125 MG, BID
     Route: 048
     Dates: start: 20051001, end: 20100501
  2. TRACLEER [Suspect]
     Dosage: UNK
     Route: 048
     Dates: start: 20101001
  3. VENTAVIS [Concomitant]
     Indication: PULMONARY ARTERIAL HYPERTENSION

REACTIONS (9)
  - CARDIAC ARREST [None]
  - CONDITION AGGRAVATED [None]
  - CARDIAC FAILURE [None]
  - PREGNANCY [None]
  - NORMAL NEWBORN [None]
  - PULMONARY ARTERIAL HYPERTENSION [None]
  - CONCOMITANT DISEASE PROGRESSION [None]
  - RESUSCITATION [None]
  - SYSTEMIC LUPUS ERYTHEMATOSUS [None]
